FAERS Safety Report 5026560-8 (Version None)
Quarter: 2006Q2

REPORT INFORMATION
  Report Type: 
  Country: None (occurrence: None)
  Receive Date: 20060615
  Receipt Date: 20020312
  Transmission Date: 20061013
  Serious: Yes (Hospitalization)
  Sender: FDA-Public Use
  Company Number: CH-ROCHE-308974

PATIENT
  Age: 53 Year
  Sex: Male

DRUGS (1)
  1. MEFLOQUINE HCL [Suspect]
     Indication: PLASMODIUM FALCIPARUM INFECTION
     Route: 065

REACTIONS (3)
  - DIFFUSE ALVEOLAR DAMAGE [None]
  - DRUG TOXICITY [None]
  - PULMONARY TOXICITY [None]
